FAERS Safety Report 7880359-3 (Version None)
Quarter: 2011Q4

REPORT INFORMATION
  Report Type: 
  Country: None (occurrence: None)
  Receive Date: 20111101
  Receipt Date: 20111025
  Transmission Date: 20120403
  Serious: Yes (Other)
  Sender: FDA-Public Use
  Company Number: PHHY2011GB94227

PATIENT
  Age: 60 Year
  Sex: Female
  Weight: 105.5 kg

DRUGS (10)
  1. ASPIRIN [Concomitant]
     Dosage: UNK
     Dates: start: 20110630
  2. BENDROFLUMETHIAZIDE [Concomitant]
     Dosage: UNK
     Dates: start: 20110630
  3. SOLIFENACIN SUCCINATE [Concomitant]
     Dosage: UNK
     Dates: start: 20110630
  4. ENALAPRIL [Concomitant]
     Dosage: UNK
     Dates: start: 20110630
  5. FELODIPINE [Concomitant]
     Dosage: UNK
     Dates: start: 20110630
  6. NAPROXEN [Concomitant]
     Dosage: UNK
     Dates: start: 20110804
  7. TRAMADOL HYDROCHLORIDE [Concomitant]
     Dosage: UNK
     Dates: start: 20110630
  8. COLCHICINE [Concomitant]
     Dosage: UNK
     Dates: start: 20110825
  9. GABAPENTIN [Suspect]
     Dosage: UNK
     Dates: start: 20110720, end: 20110819
  10. GABAPENTIN [Suspect]
     Dosage: UNK
     Dates: start: 20110831, end: 20110930

REACTIONS (2)
  - CUTANEOUS VASCULITIS [None]
  - VASCULITIC RASH [None]
